FAERS Safety Report 10087231 (Version 1)
Quarter: 2014Q2

REPORT INFORMATION
  Report Type: Report from Study
  Country: US (occurrence: US)
  Receive Date: 20140418
  Receipt Date: 20140418
  Transmission Date: 20141212
  Serious: Yes (Life-Threatening, Hospitalization)
  Sender: FDA-Public Use
  Company Number: US-TEVA-476813USA

PATIENT
  Age: 4 Month
  Sex: Female
  Weight: 3.93 kg

DRUGS (7)
  1. LESTAURTINIB [Suspect]
     Dates: start: 20140307, end: 20140329
  2. CYCLOPHOSPHAMIDE [Suspect]
     Dates: start: 20140307
  3. CYTARABINE [Suspect]
     Dates: start: 20140307
  4. ETOPOSIDE [Suspect]
     Dates: start: 20140307
  5. HYDROCORTISONE [Suspect]
     Dates: start: 20140307
  6. FOLINIC ACID [Suspect]
     Dates: start: 20140307
  7. METHOTREXATE [Suspect]
     Dates: start: 20140307

REACTIONS (2)
  - Sepsis [Recovering/Resolving]
  - Respiratory failure [Recovering/Resolving]
